FAERS Safety Report 24587912 (Version 1)
Quarter: 2024Q4

REPORT INFORMATION
  Report Type: Report from Study
  Country: US (occurrence: US)
  Receive Date: 20241107
  Receipt Date: 20241107
  Transmission Date: 20250115
  Serious: Yes (Death, Other)
  Sender: RANBAXY
  Company Number: US-SUN PHARMACEUTICAL INDUSTRIES LTD-2024R1-477949

PATIENT
  Age: 64 Year
  Sex: Female

DRUGS (1)
  1. METFORMIN [Suspect]
     Active Substance: METFORMIN HYDROCHLORIDE
     Indication: Product used for unknown indication
     Route: 065

REACTIONS (8)
  - Toxicity to various agents [Fatal]
  - Anion gap [Fatal]
  - Leukocytosis [Fatal]
  - Acute kidney injury [Fatal]
  - Hypertension [Fatal]
  - Metabolic acidosis [Fatal]
  - Osmolar gap [Fatal]
  - Electrocardiogram QT prolonged [Fatal]
